FAERS Safety Report 4746328-7 (Version None)
Quarter: 2005Q3

REPORT INFORMATION
  Report Type: 
  Country: None (occurrence: None)
  Receive Date: 20050817
  Receipt Date: 20050808
  Transmission Date: 20060218
  Serious: No
  Sender: FDA-Public Use
  Company Number: GB-BOEHRINGER INGELHEIM PHARMACEUTICALS, INC.-2005-UK-01462UK

PATIENT
  Age: 59 Year
  Sex: Female

DRUGS (6)
  1. SPIRIVA [Suspect]
     Indication: ASTHMA
     Dosage: 1 DOSE DAILY
     Route: 055
     Dates: start: 20050713, end: 20050716
  2. ACETAMINOPHEN W/ CODEINE [Concomitant]
     Indication: ANALGESIC EFFECT
     Route: 048
     Dates: start: 20050701
  3. PROZAC [Concomitant]
     Indication: DEPRESSION
     Route: 048
     Dates: start: 20050701
  4. AMOXICILLIN [Concomitant]
     Indication: LOWER RESPIRATORY TRACT INFECTION
     Dosage: 500MG TWICE DAILY
     Route: 048
     Dates: start: 20050613, end: 20050620
  5. LOPERAMIDE [Concomitant]
     Indication: PAIN
     Dosage: 70MG TWICE DAILY
     Route: 048
     Dates: start: 20050517, end: 20050520
  6. EVOREL CONTI [Concomitant]
     Indication: HORMONE REPLACEMENT THERAPY
     Dosage: 50MCG/24HRS
     Route: 061
     Dates: start: 19970101

REACTIONS (2)
  - CHEST DISCOMFORT [None]
  - CHEST PAIN [None]
